FAERS Safety Report 25285608 (Version 2)
Quarter: 2025Q3

REPORT INFORMATION
  Report Type: Report from Study
  Country: US (occurrence: US)
  Receive Date: 20250509
  Receipt Date: 20250710
  Transmission Date: 20251020
  Serious: No
  Sender: SUNOVION
  Company Number: US-SMPA-2025SPA004532AA

PATIENT

DRUGS (4)
  1. ORGOVYX [Suspect]
     Active Substance: RELUGOLIX
     Indication: Prostate cancer
     Dosage: 360 MG, SINGLE
     Route: 048
     Dates: start: 20250321, end: 20250321
  2. ORGOVYX [Suspect]
     Active Substance: RELUGOLIX
     Dosage: 120 MG, QD
     Route: 048
     Dates: start: 20250322
  3. PREDNISONE [Suspect]
     Active Substance: PREDNISONE
     Indication: Prostate cancer
     Dosage: 5 MG, BID
     Route: 065
     Dates: start: 20250321
  4. ABIRATERONE ACETATE [Concomitant]
     Active Substance: ABIRATERONE ACETATE
     Indication: Prostate cancer
     Dosage: 1000 MG, QD
     Route: 065
     Dates: start: 20250321

REACTIONS (9)
  - Confusional state [Unknown]
  - Brain fog [Unknown]
  - Contusion [Unknown]
  - Joint swelling [Unknown]
  - Joint stiffness [Unknown]
  - Urine analysis abnormal [Unknown]
  - Glycosylated haemoglobin increased [Unknown]
  - Arthralgia [Unknown]
  - Hot flush [Unknown]
